FAERS Safety Report 24982850 (Version 1)
Quarter: 2025Q1

REPORT INFORMATION
  Report Type: Spontaneous
  Country: CN (occurrence: CN)
  Receive Date: 20250218
  Receipt Date: 20250218
  Transmission Date: 20250408
  Serious: Yes (Hospitalization)
  Sender: SANDOZ
  Company Number: None

PATIENT
  Age: 34 Year
  Sex: Male

DRUGS (2)
  1. VORICONAZOLE [Suspect]
     Active Substance: VORICONAZOLE
     Indication: Antifungal prophylaxis
     Dosage: 200 MG, BID
     Route: 048
     Dates: start: 20250109, end: 20250126
  2. VORICONAZOLE [Suspect]
     Active Substance: VORICONAZOLE
     Dosage: 150 MG, BID
     Route: 048

REACTIONS (4)
  - Cytomegalovirus viraemia [Unknown]
  - Hepatic enzyme increased [Recovering/Resolving]
  - Drug level increased [Recovering/Resolving]
  - Vision blurred [Recovering/Resolving]

NARRATIVE: CASE EVENT DATE: 20250120
